FAERS Safety Report 5210933-4 (Version None)
Quarter: 2006Q4

REPORT INFORMATION
  Report Type: 
  Country: None (occurrence: None)
  Receive Date: 20061102
  Receipt Date: 20060725
  Transmission Date: 20070319
  Serious: Yes (Other)
  Sender: FDA-Public Use
  Company Number: 29181

PATIENT
  Age: 18 Year
  Sex: Female
  Weight: 70.7611 kg

DRUGS (2)
  1. METHOTREXATE [Suspect]
     Indication: ECTOPIC PREGNANCY
     Dosage: 50MG/M2(89GM)/IM
     Dates: start: 20060713
  2. METHOTREXATE [Suspect]
     Indication: ECTOPIC PREGNANCY
     Dosage: 50MG/M2(89GM)/IM
     Dates: start: 20060713

REACTIONS (1)
  - DRUG INEFFECTIVE [None]
